FAERS Safety Report 8050047-1 (Version None)
Quarter: 2012Q1

REPORT INFORMATION
  Report Type: 
  Country: None (occurrence: None)
  Receive Date: 20120117
  Receipt Date: 20120109
  Transmission Date: 20120608
  Serious: Yes (Hospitalization, Other)
  Sender: FDA-Public Use
  Company Number: US-BAYER-2010-001597

PATIENT
  Age: 33 Year
  Sex: Female

DRUGS (8)
  1. YAZ [Suspect]
     Indication: PRODUCT USED FOR UNKNOWN INDICATION
     Dosage: UNK
     Dates: start: 20010201, end: 20100401
  2. METFORMIN HCL [Concomitant]
  3. GLYBURIDE [Concomitant]
  4. AMOXICILLIN [Concomitant]
  5. LISINOPRIL [Concomitant]
  6. YASMIN [Suspect]
     Indication: PRODUCT USED FOR UNKNOWN INDICATION
     Dosage: UNK
     Dates: start: 20010201, end: 20100401
  7. TIGAN [Concomitant]
  8. UNCODEABLE ^UNKNOWN MANUFACTURER^ [Concomitant]

REACTIONS (7)
  - INJURY [None]
  - PAIN [None]
  - CHOLECYSTITIS CHRONIC [None]
  - FEAR [None]
  - CHOLELITHIASIS [None]
  - PANCREATITIS ACUTE [None]
  - ANXIETY [None]
